FAERS Safety Report 18079792 (Version 2)
Quarter: 2020Q3

REPORT INFORMATION
  Report Type: Spontaneous
  Country: FR (occurrence: FR)
  Receive Date: 20200728
  Receipt Date: 20200821
  Transmission Date: 20201103
  Serious: Yes (Other)
  Sender: FDA-Public Use
  Company Number: FR-MYLANLABS-2020M1066473

PATIENT
  Age: 38 Year
  Sex: Male

DRUGS (38)
  1. FLUVOXAMINE [Suspect]
     Active Substance: FLUVOXAMINE
     Indication: DEREALISATION
  2. FLUVOXAMINE [Suspect]
     Active Substance: FLUVOXAMINE
     Indication: APATHY
  3. FLUVOXAMINE [Suspect]
     Active Substance: FLUVOXAMINE
     Indication: SUICIDAL IDEATION
  4. TRIMIPRAMINE [Suspect]
     Active Substance: TRIMIPRAMINE
     Indication: DEPRESSED MOOD
  5. FLUVOXAMINE [Suspect]
     Active Substance: FLUVOXAMINE
     Indication: DEPRESSED MOOD
  6. CYAMEMAZINE [Suspect]
     Active Substance: CYAMEMAZINE
     Indication: DEPRESSION
  7. HALOPERIDOL. [Suspect]
     Active Substance: HALOPERIDOL
     Indication: DEREALISATION
  8. CLORAZEPATE DIPOTASSIUM. [Suspect]
     Active Substance: CLORAZEPATE DIPOTASSIUM
     Indication: SUICIDAL IDEATION
  9. TRIMIPRAMINE [Suspect]
     Active Substance: TRIMIPRAMINE
     Indication: APATHY
     Dosage: 200 MG
  10. TRIMIPRAMINE [Suspect]
     Active Substance: TRIMIPRAMINE
     Indication: DEREALISATION
  11. ANETHOL TRITHIONE [Suspect]
     Active Substance: ANETHOLTRITHION
     Indication: SUICIDAL IDEATION
     Dosage: 25 MILLIGRAM
  12. FLUVOXAMINE [Suspect]
     Active Substance: FLUVOXAMINE
     Indication: DEPRESSION
  13. CYAMEMAZINE [Suspect]
     Active Substance: CYAMEMAZINE
     Indication: DEPRESSED MOOD
  14. BIPERIDEN [Suspect]
     Active Substance: BIPERIDEN
     Dosage: 2 MILLIGRAM
     Route: 065
  15. CLORAZEPATE DIPOTASSIUM. [Suspect]
     Active Substance: CLORAZEPATE DIPOTASSIUM
     Indication: APATHY
  16. HALOPERIDOL. [Suspect]
     Active Substance: HALOPERIDOL
     Indication: DEPRESSION
  17. BIPERIDEN [Suspect]
     Active Substance: BIPERIDEN
     Indication: PRODUCT USED FOR UNKNOWN INDICATION
     Dosage: 8 MILLIGRAM
  18. BIPERIDEN [Suspect]
     Active Substance: BIPERIDEN
     Dosage: 4 MILLIGRAM
  19. TRIMIPRAMINE [Suspect]
     Active Substance: TRIMIPRAMINE
     Indication: ABNORMAL BEHAVIOUR
  20. ANETHOL TRITHIONE [Suspect]
     Active Substance: ANETHOLTRITHION
     Indication: DEREALISATION
  21. ANETHOL TRITHIONE [Suspect]
     Active Substance: ANETHOLTRITHION
     Indication: ABNORMAL BEHAVIOUR
  22. ANETHOL TRITHIONE [Suspect]
     Active Substance: ANETHOLTRITHION
     Indication: DEPRESSION
  23. ANETHOL TRITHIONE [Suspect]
     Active Substance: ANETHOLTRITHION
     Indication: APATHY
  24. HALOPERIDOL. [Suspect]
     Active Substance: HALOPERIDOL
     Indication: ABNORMAL BEHAVIOUR
  25. TRIMIPRAMINE [Suspect]
     Active Substance: TRIMIPRAMINE
     Indication: SUICIDAL IDEATION
  26. CYAMEMAZINE [Suspect]
     Active Substance: CYAMEMAZINE
     Indication: DEREALISATION
     Dosage: 200 MILLIGRAM
  27. CLORAZEPATE DIPOTASSIUM. [Suspect]
     Active Substance: CLORAZEPATE DIPOTASSIUM
     Indication: DEREALISATION
     Dosage: 150 MILLIGRAM
  28. CLORAZEPATE DIPOTASSIUM. [Suspect]
     Active Substance: CLORAZEPATE DIPOTASSIUM
     Indication: ABNORMAL BEHAVIOUR
  29. TRIMIPRAMINE [Suspect]
     Active Substance: TRIMIPRAMINE
     Indication: DEPRESSION
  30. FLUVOXAMINE [Suspect]
     Active Substance: FLUVOXAMINE
     Indication: ABNORMAL BEHAVIOUR
     Dosage: 300 MILLIGRAM
  31. CYAMEMAZINE [Suspect]
     Active Substance: CYAMEMAZINE
     Indication: SUICIDAL IDEATION
  32. CYAMEMAZINE [Suspect]
     Active Substance: CYAMEMAZINE
     Indication: ABNORMAL BEHAVIOUR
  33. HALOPERIDOL. [Suspect]
     Active Substance: HALOPERIDOL
     Indication: SUICIDAL IDEATION
  34. CLORAZEPATE DIPOTASSIUM. [Suspect]
     Active Substance: CLORAZEPATE DIPOTASSIUM
     Indication: DEPRESSION
  35. ANETHOL TRITHIONE [Suspect]
     Active Substance: ANETHOLTRITHION
     Indication: DEPRESSED MOOD
  36. CYAMEMAZINE [Suspect]
     Active Substance: CYAMEMAZINE
     Indication: APATHY
  37. HALOPERIDOL. [Suspect]
     Active Substance: HALOPERIDOL
     Indication: APATHY
     Dosage: 15 MILLIGRAM
  38. CLORAZEPATE DIPOTASSIUM. [Suspect]
     Active Substance: CLORAZEPATE DIPOTASSIUM
     Indication: DEPRESSED MOOD

REACTIONS (17)
  - Muscle atrophy [Recovered/Resolved]
  - Anxiety [Recovered/Resolved]
  - Extrapyramidal disorder [Recovered/Resolved]
  - Toxic skin eruption [Recovered/Resolved]
  - Tremor [Recovered/Resolved]
  - Neuroleptic malignant syndrome [Recovered/Resolved]
  - Psychomotor retardation [Recovered/Resolved]
  - Muscular weakness [Recovered/Resolved]
  - Decubitus ulcer [Recovered/Resolved]
  - Dermatitis bullous [Recovered/Resolved]
  - Rash vesicular [Recovered/Resolved]
  - Confusional state [Recovered/Resolved]
  - Hypertonia [Recovered/Resolved]
  - Disorientation [Recovered/Resolved]
  - Blood creatine phosphokinase increased [Recovered/Resolved]
  - Alanine aminotransferase increased [Recovered/Resolved]
  - Aspartate aminotransferase increased [Recovered/Resolved]
